FAERS Safety Report 22319836 (Version 1)
Quarter: 2023Q2

REPORT INFORMATION
  Report Type: Spontaneous
  Country: CN (occurrence: None)
  Receive Date: 20230515
  Receipt Date: 20230515
  Transmission Date: 20230722
  Serious: Yes (Other)
  Sender: FDA-Public Use
  Company Number: CN-ROCHE-3346775

PATIENT
  Age: 39 Year
  Sex: Female

DRUGS (15)
  1. HERCEPTIN [Suspect]
     Active Substance: TRASTUZUMAB
     Indication: Breast cancer metastatic
     Dosage: THP: 8MG/KG FOR THE FIRST TIME, 6MG/KG FOR FOLLOW-UP
     Route: 041
     Dates: start: 20191128, end: 20200407
  2. HERCEPTIN [Suspect]
     Active Substance: TRASTUZUMAB
     Indication: Metastases to lymph nodes
     Dosage: HP
     Route: 041
     Dates: start: 20200421, end: 20210308
  3. PERJETA [Suspect]
     Active Substance: PERTUZUMAB
     Indication: Breast cancer metastatic
     Dosage: THP: 840MG FOR THE FIRST TIME, 420MG FOR FOLLOW-UP
     Route: 041
     Dates: start: 20191128, end: 20200407
  4. PERJETA [Suspect]
     Active Substance: PERTUZUMAB
     Indication: Metastases to lymph nodes
     Dosage: HP
     Route: 041
     Dates: start: 20200421, end: 20210308
  5. XELODA [Suspect]
     Active Substance: CAPECITABINE
     Indication: Breast cancer metastatic
     Dosage: LX: Q21D
     Route: 048
     Dates: start: 20210421
  6. XELODA [Suspect]
     Active Substance: CAPECITABINE
     Indication: Metastases to lymph nodes
  7. KADCYLA [Concomitant]
     Active Substance: ADO-TRASTUZUMAB EMTANSINE
     Indication: Breast cancer metastatic
     Route: 042
     Dates: start: 202203
  8. KADCYLA [Concomitant]
     Active Substance: ADO-TRASTUZUMAB EMTANSINE
     Indication: Metastases to lymph nodes
  9. PACLITAXEL [Concomitant]
     Active Substance: PACLITAXEL
     Indication: Breast cancer metastatic
     Dosage: THP: DAY1, 8
     Route: 041
     Dates: start: 20191128, end: 20200407
  10. PACLITAXEL [Concomitant]
     Active Substance: PACLITAXEL
     Indication: Metastases to lymph nodes
  11. LEUPROLIDE ACETATE [Concomitant]
     Active Substance: LEUPROLIDE ACETATE
     Dates: start: 20200421, end: 20210308
  12. LETROZOLE [Concomitant]
     Active Substance: LETROZOLE
     Indication: Breast cancer metastatic
     Route: 048
     Dates: start: 20200421, end: 20210308
  13. LETROZOLE [Concomitant]
     Active Substance: LETROZOLE
     Indication: Metastases to lymph nodes
  14. LAPATINIB [Concomitant]
     Active Substance: LAPATINIB
     Indication: Breast cancer metastatic
     Dosage: LX: Q21D
     Route: 048
     Dates: start: 20210421, end: 20211027
  15. LAPATINIB [Concomitant]
     Active Substance: LAPATINIB
     Indication: Metastases to lymph nodes
     Route: 048
     Dates: start: 20211028, end: 20211227

REACTIONS (6)
  - Gastrointestinal disorder [Unknown]
  - Palmar-plantar erythrodysaesthesia syndrome [Unknown]
  - Asthenia [Unknown]
  - Decreased appetite [Unknown]
  - Cough [Unknown]
  - Productive cough [Unknown]

NARRATIVE: CASE EVENT DATE: 20220201
